FAERS Safety Report 6483976-0 (Version None)
Quarter: 2009Q4

REPORT INFORMATION
  Report Type: 
  Country: None (occurrence: None)
  Receive Date: 20091209
  Receipt Date: 20090518
  Transmission Date: 20100525
  Serious: No
  Sender: FDA-Public Use
  Company Number: US-AMGEN-KDL347578

PATIENT
  Sex: Female

DRUGS (8)
  1. ENBREL [Suspect]
     Indication: PSORIASIS
     Route: 058
     Dates: start: 20090506
  2. ENBREL [Suspect]
     Indication: PSORIATIC ARTHROPATHY
  3. PROZAC [Concomitant]
  4. ESTROGEN NOS [Concomitant]
  5. ANTACID TAB [Concomitant]
  6. ADVIL [Concomitant]
  7. DOVONEX [Concomitant]
  8. OLUX [Concomitant]

REACTIONS (5)
  - INJECTION SITE ERYTHEMA [None]
  - INJECTION SITE NODULE [None]
  - INJECTION SITE REACTION [None]
  - INJECTION SITE RECALL REACTION [None]
  - INJECTION SITE SWELLING [None]
